FAERS Safety Report 8809253 (Version 5)
Quarter: 2013Q4

REPORT INFORMATION
  Report Type: Report from Study
  Country: KR (occurrence: KR)
  Receive Date: 20120926
  Receipt Date: 20131029
  Transmission Date: 20140711
  Serious: Yes (Hospitalization)
  Sender: FDA-Public Use
  Company Number: KR-EISAI INC-E7389-03026-CLI-KR

PATIENT
  Age: 50 Year
  Sex: Male
  Weight: 87 kg

DRUGS (11)
  1. E7389 (BOLD) [Suspect]
     Indication: NON-SMALL CELL LUNG CANCER
     Route: 041
     Dates: start: 20120906, end: 20120913
  2. E7389 (BOLD) [Suspect]
     Route: 041
     Dates: start: 20120927
  3. HEPARIN [Concomitant]
     Indication: CHEMOTHERAPY
     Route: 065
     Dates: start: 20101222
  4. TRANEXAMIC ACID [Concomitant]
     Indication: HAEMOPTYSIS
     Route: 048
     Dates: start: 20120329
  5. BROMHEXINE HCL [Concomitant]
     Indication: PRODUCTIVE COUGH
     Route: 048
     Dates: start: 20120409
  6. ACEBROPHYLLIN [Concomitant]
     Indication: PRODUCTIVE COUGH
     Route: 048
     Dates: start: 20120430
  7. CODEINE PHOSPHATE [Concomitant]
     Indication: PRODUCTIVE COUGH
     Route: 048
     Dates: start: 20120712
  8. CARBOXYMETHYLCYSTEINE [Concomitant]
     Indication: PRODUCTIVE COUGH
     Route: 048
     Dates: start: 20120906
  9. ACETAMINOPHEN [Concomitant]
     Indication: PYREXIA
     Route: 048
     Dates: start: 20120907, end: 20120909
  10. ACETAMINOPHEN [Concomitant]
     Route: 048
     Dates: start: 20120914, end: 20120916
  11. LEVOFLOXACIN [Concomitant]
     Indication: LUNG INFECTION
     Route: 048
     Dates: start: 20120913, end: 20120917

REACTIONS (1)
  - Pneumonia [Recovered/Resolved]
